FAERS Safety Report 10024526 (Version 2)
Quarter: 2014Q2

REPORT INFORMATION
  Report Type: Report from Study
  Country: TW (occurrence: TW)
  Receive Date: 20140320
  Receipt Date: 20140428
  Transmission Date: 20141212
  Serious: Yes (Hospitalization)
  Sender: FDA-Public Use
  Company Number: TW-ABBVIE-14P-153-1213270-00

PATIENT
  Age: 45 Year
  Sex: Male

DRUGS (13)
  1. HUMIRA [Suspect]
     Indication: PSORIATIC ARTHROPATHY
     Route: 058
     Dates: start: 20110708, end: 20140306
  2. ULTRACET [Concomitant]
     Indication: PSORIATIC ARTHROPATHY
     Dosage: TRAMADOL 37.5MG+ACETAMINOPHEN 325MG
     Route: 048
     Dates: start: 20140227
  3. NORVASC [Concomitant]
     Indication: HYPERTENSION
     Route: 048
     Dates: start: 20140227
  4. CO-DIOVAN [Concomitant]
     Indication: HYPERTENSION
     Dosage: VALSARTAN 160MG+HCTZ 12.5 MG
     Route: 048
     Dates: start: 20140227
  5. COLCHICINE [Concomitant]
     Indication: PRODUCT USED FOR UNKNOWN INDICATION
     Route: 048
     Dates: start: 20140227
  6. ACECLOFENAC [Concomitant]
     Indication: PSORIATIC ARTHROPATHY
     Route: 048
     Dates: start: 20140227
  7. FRADIOMYCIN [Concomitant]
     Indication: PRODUCT USED FOR UNKNOWN INDICATION
     Dosage: FLUOCINOLONE 0.025% + FRADIOMYCIN 0.3M/TUBE
     Route: 061
     Dates: start: 20140227
  8. FLUOCINONIDE [Concomitant]
     Indication: PSORIASIS
     Dosage: FLUOCINONIDE LOTION 0.05%,10GM/BOT
     Route: 061
     Dates: start: 20140227
  9. DAIVOBET [Concomitant]
     Indication: PSORIASIS
     Dosage: CALCIPOTRIOL 50MCG+BETASONE 0.5MG)/GM,30GM/TUBE
     Route: 061
     Dates: start: 20140227
  10. SALICYLIC ACID [Concomitant]
     Indication: PSORIASIS
     Dosage: SALICYLIC ACID 30MG+FM 0.2MG/GM , OIGM/TUBE
     Route: 061
     Dates: start: 20140227
  11. ALUMINUM MAGNESIA SUSP [Concomitant]
     Indication: PRODUCT USED FOR UNKNOWN INDICATION
     Route: 048
     Dates: start: 20140227
  12. ALUMINUM MAGNESIA SUSP [Concomitant]
     Indication: PRODUCT USED FOR UNKNOWN INDICATION
  13. GENTAMICIN [Concomitant]
     Indication: PRODUCT USED FOR UNKNOWN INDICATION
     Dosage: 1QS/BID
     Route: 061
     Dates: start: 20140227

REACTIONS (3)
  - Erythema [Recovering/Resolving]
  - Swelling [Recovering/Resolving]
  - Cellulitis [Recovering/Resolving]
